FAERS Safety Report 4879805-9 (Version None)
Quarter: 2006Q1

REPORT INFORMATION
  Report Type: 
  Country: None (occurrence: None)
  Receive Date: 20060113
  Receipt Date: 20050621
  Transmission Date: 20060701
  Serious: Yes (Other)
  Sender: FDA-Public Use
  Company Number: BE-AMGEN-UK139803

PATIENT
  Sex: Female
  Weight: 74 kg

DRUGS (11)
  1. PALIFERMIN [Suspect]
     Indication: MUCOSAL INFLAMMATION
     Route: 042
     Dates: start: 20050614, end: 20050616
  2. ZOVIRAX [Concomitant]
     Route: 042
     Dates: start: 20050613
  3. ZOMETA [Concomitant]
     Route: 042
     Dates: start: 20050613
  4. BUMETANIDE [Concomitant]
     Route: 048
     Dates: start: 20050613
  5. OFLOXACIN [Concomitant]
     Route: 048
     Dates: start: 20050613, end: 20050617
  6. DIFLUCAN [Concomitant]
     Route: 048
     Dates: start: 20050613, end: 20050617
  7. OMEPRAZOLE [Concomitant]
     Route: 048
     Dates: start: 20050613, end: 20050617
  8. KONAKION [Concomitant]
     Route: 042
     Dates: start: 20050615
  9. NADROPARIN CALCIUM [Concomitant]
     Route: 058
     Dates: start: 20050501
  10. BUPRENORPHINE [Concomitant]
     Route: 042
     Dates: start: 20050615, end: 20050616
  11. MELPHALAN [Concomitant]
     Dates: start: 20050617, end: 20050618

REACTIONS (6)
  - ERYTHEMA [None]
  - FACE OEDEMA [None]
  - PARAESTHESIA ORAL [None]
  - PRURITUS [None]
  - RASH [None]
  - SWOLLEN TONGUE [None]
